FAERS Safety Report 8640152 (Version 2)
Quarter: 2013Q2

REPORT INFORMATION
  Report Type: Report from Study
  Country: US (occurrence: US)
  Receive Date: 20120628
  Receipt Date: 20130627
  Transmission Date: 20140414
  Serious: Yes (Other)
  Sender: FDA-Public Use
  Company Number: US-MYLANLABS-2011S1025556

PATIENT
  Age: 41 Year
  Sex: Male

DRUGS (12)
  1. CLOZAPINE TABLETS [Suspect]
     Route: 048
     Dates: end: 20120518
  2. CLOZAPINE TABLETS [Suspect]
     Route: 048
     Dates: start: 201205
  3. GLYBURIDE [Concomitant]
     Indication: DIABETES MELLITUS
     Route: 048
  4. CYMBALTA [Concomitant]
     Route: 048
  5. LORAZEPAM [Concomitant]
  6. WELLBUTRIN XL [Concomitant]
  7. VITAMIN D [Concomitant]
     Dosage: 1000 (UNITS NOT PROVIDED)
  8. DEXILANT [Concomitant]
     Indication: ABDOMINAL OPERATION
  9. MERCAPTOPURINE [Concomitant]
  10. VITAMIN B6 [Concomitant]
  11. INH [Concomitant]
  12. CALTRATE [Concomitant]
     Dosage: 2 DOSAGE FORMS, DOSE UNKNOWN

REACTIONS (2)
  - Granulocytopenia [Not Recovered/Not Resolved]
  - Leukopenia [Not Recovered/Not Resolved]
